FAERS Safety Report 25955978 (Version 1)
Quarter: 2025Q4

REPORT INFORMATION
  Report Type: Other
  Country: US (occurrence: US)
  Receive Date: 20251024
  Receipt Date: 20251024
  Transmission Date: 20260118
  Serious: Yes (Hospitalization, Other)
  Sender: INTERCEPT PHARMACEUTICALS
  Company Number: US-INTERCEPTP-2025-AER-06882

PATIENT
  Sex: Female

DRUGS (2)
  1. OCALIVA [Suspect]
     Active Substance: OBETICHOLIC ACID
     Indication: Primary biliary cholangitis
     Dates: start: 201805
  2. IQIRVO [Concomitant]
     Active Substance: ELAFIBRANOR

REACTIONS (1)
  - Atrial fibrillation [Unknown]
